FAERS Safety Report 7561947-0 (Version None)
Quarter: 2011Q2

REPORT INFORMATION
  Report Type: 
  Country: None (occurrence: None)
  Receive Date: 20110621
  Receipt Date: 20110613
  Transmission Date: 20111010
  Serious: Yes (Disabling, Other)
  Sender: FDA-Public Use
  Company Number: US-MERCK-1104USA01639

PATIENT
  Age: 42 Year
  Sex: Female
  Weight: 68 kg

DRUGS (4)
  1. PREMARIN [Concomitant]
     Indication: HORMONE THERAPY
     Route: 065
     Dates: start: 19991208, end: 20070319
  2. CITRICAL [Concomitant]
     Route: 065
     Dates: start: 20010101
  3. FOSAMAX [Suspect]
     Indication: OSTEOPENIA
     Route: 048
     Dates: start: 20010109, end: 20090319
  4. CENTRUM [Concomitant]
     Route: 065
     Dates: start: 20010101

REACTIONS (16)
  - OSTEOPOROSIS [None]
  - UTERINE LEIOMYOMA [None]
  - BACK PAIN [None]
  - ROSACEA [None]
  - TOOTH DISORDER [None]
  - CARBOHYDRATE ANTIGEN 125 INCREASED [None]
  - ARTHRALGIA [None]
  - VAGINAL ODOUR [None]
  - OVARIAN CYST [None]
  - UTERINE DISORDER [None]
  - VITAMIN D INCREASED [None]
  - PELVIC ADHESIONS [None]
  - FEMUR FRACTURE [None]
  - INFLAMMATION OF WOUND [None]
  - FUNGAL INFECTION [None]
  - URINARY INCONTINENCE [None]
